FAERS Safety Report 6084949-2 (Version None)
Quarter: 2009Q1

REPORT INFORMATION
  Report Type: 
  Country: None (occurrence: None)
  Receive Date: 20090209
  Receipt Date: 20090129
  Transmission Date: 20090719
  Serious: Yes (Hospitalization, Disabling, Other)
  Sender: FDA-Public Use
  Company Number: WAES 0812USA03202

PATIENT
  Age: 10 Month
  Sex: Female
  Weight: 4.9896 kg

DRUGS (1)
  1. COZAAR [Suspect]
     Indication: MARFAN'S SYNDROME
     Dosage: 3MG/DAILY/PO
     Route: 048
     Dates: start: 20081113, end: 20081211

REACTIONS (8)
  - CARDIAC FAILURE [None]
  - CARDIAC MURMUR [None]
  - HEART RATE INCREASED [None]
  - MITRAL VALVE INCOMPETENCE [None]
  - PNEUMOPERICARDIUM [None]
  - PNEUMOTHORAX [None]
  - POST PROCEDURAL COMPLICATION [None]
  - TACHYPNOEA [None]
